FAERS Safety Report 23404725 (Version 1)
Quarter: 2024Q1

REPORT INFORMATION
  Report Type: Spontaneous
  Country: US (occurrence: None)
  Receive Date: 20240112
  Receipt Date: 20240112
  Transmission Date: 20240409
  Serious: Yes (Hospitalization)
  Sender: FDA-Public Use
  Company Number: None

PATIENT
  Age: 61 Year
  Sex: Male
  Weight: 82.4 kg

DRUGS (9)
  1. GEMTUZUMAB OZOGAMICIN [Suspect]
     Active Substance: GEMTUZUMAB OZOGAMICIN
     Indication: Acute myeloid leukaemia recurrent
     Dosage: 4.5 MG  DAYS 1,4 AND 7 INTRAVENOUS DRIP  DAYS 1,4 AND 7;?
     Route: 041
     Dates: start: 20231130, end: 20231206
  2. TAGRAXOFUSP-ERZS [Suspect]
     Active Substance: TAGRAXOFUSP-ERZS
     Indication: Acute myeloid leukaemia recurrent
     Dosage: OTHER QUANTITY : 7 UG/KG?OTHER FREQUENCY : DAILY, D 10-12?
     Route: 041
     Dates: start: 20231209, end: 20231210
  3. VALCYTE [Concomitant]
     Active Substance: VALGANCICLOVIR HYDROCHLORIDE
  4. ATOVAQUONE [Concomitant]
     Active Substance: ATOVAQUONE
  5. LASIX [Concomitant]
     Active Substance: FUROSEMIDE
  6. CRESEMBA [Concomitant]
     Active Substance: ISAVUCONAZONIUM SULFATE
  7. POTASSIUM CHLORIDE [Concomitant]
     Active Substance: POTASSIUM CHLORIDE
  8. PREDNISONE [Concomitant]
     Active Substance: PREDNISONE
  9. COMPAZINE [Concomitant]
     Active Substance: PROCHLORPERAZINE MALEATE

REACTIONS (8)
  - Capillary leak syndrome [None]
  - Loss of consciousness [None]
  - Dizziness [None]
  - Visual impairment [None]
  - Vomiting [None]
  - Hypervolaemia [None]
  - Hypophagia [None]
  - Cytomegalovirus infection [None]

NARRATIVE: CASE EVENT DATE: 20240104
